FAERS Safety Report 11965573 (Version 1)
Quarter: 2016Q1

REPORT INFORMATION
  Report Type: Spontaneous
  Country: US (occurrence: None)
  Receive Date: 20160125
  Receipt Date: 20160125
  Transmission Date: 20160526
  Serious: Yes (Disabling)
  Sender: FDA-Public Use
  Company Number: None

PATIENT
  Age: 33 Year
  Sex: Female
  Weight: 63.5 kg

DRUGS (1)
  1. OPTIMARK [Suspect]
     Active Substance: GADOVERSETAMIDE
     Indication: NUCLEAR MAGNETIC RESONANCE IMAGING
     Route: 042

REACTIONS (25)
  - Vitreous floaters [None]
  - Paraesthesia [None]
  - Muscle spasms [None]
  - Cold sweat [None]
  - Dysgeusia [None]
  - Insomnia [None]
  - Drug level increased [None]
  - Arthralgia [None]
  - Musculoskeletal stiffness [None]
  - Muscular weakness [None]
  - Contrast media reaction [None]
  - Head discomfort [None]
  - Oropharyngeal discomfort [None]
  - Palpitations [None]
  - Tinnitus [None]
  - Peripheral coldness [None]
  - Formication [None]
  - Bone pain [None]
  - Feeling abnormal [None]
  - Eye pain [None]
  - Myalgia [None]
  - Muscle twitching [None]
  - Joint stiffness [None]
  - Cognitive disorder [None]
  - Rash [None]

NARRATIVE: CASE EVENT DATE: 20150219
